FAERS Safety Report 13191135 (Version 7)
Quarter: 2017Q4

REPORT INFORMATION
  Report Type: Report from Study
  Country: None (occurrence: US)
  Receive Date: 20170207
  Receipt Date: 20171211
  Transmission Date: 20180320
  Serious: Yes (Hospitalization, Other)
  Sender: FDA-Public Use
  Company Number: US-ABBVIE-17K-163-1859297-00

PATIENT
  Age: 58 Year
  Sex: Male

DRUGS (13)
  1. METHOTREXATE. [Suspect]
     Active Substance: METHOTREXATE
     Dosage: DOSAGE DECREASED
     Route: 065
  2. METFORMIN [Concomitant]
     Active Substance: METFORMIN HYDROCHLORIDE
     Indication: PRODUCT USED FOR UNKNOWN INDICATION
  3. LISINOPRIL. [Concomitant]
     Active Substance: LISINOPRIL
     Indication: PRODUCT USED FOR UNKNOWN INDICATION
  4. ZANTAC [Concomitant]
     Active Substance: RANITIDINE HYDROCHLORIDE
     Indication: PRODUCT USED FOR UNKNOWN INDICATION
  5. METHOTREXATE. [Suspect]
     Active Substance: METHOTREXATE
     Indication: RHEUMATOID ARTHRITIS
     Route: 065
  6. CYMBALTA [Concomitant]
     Active Substance: DULOXETINE HYDROCHLORIDE
     Indication: PRODUCT USED FOR UNKNOWN INDICATION
  7. HUMIRA [Suspect]
     Active Substance: ADALIMUMAB
     Route: 058
     Dates: end: 201711
  8. GABAPENTIN. [Concomitant]
     Active Substance: GABAPENTIN
     Indication: PRODUCT USED FOR UNKNOWN INDICATION
  9. HUMIRA [Suspect]
     Active Substance: ADALIMUMAB
     Indication: RHEUMATOID ARTHRITIS
     Route: 058
     Dates: start: 201203
  10. FOSAMAX [Concomitant]
     Active Substance: ALENDRONATE SODIUM
     Indication: PRODUCT USED FOR UNKNOWN INDICATION
  11. PLAQUENIL [Concomitant]
     Active Substance: HYDROXYCHLOROQUINE SULFATE
     Indication: PRODUCT USED FOR UNKNOWN INDICATION
  12. FOLIC ACID. [Concomitant]
     Active Substance: FOLIC ACID
     Indication: PRODUCT USED FOR UNKNOWN INDICATION
  13. NORCO [Concomitant]
     Active Substance: ACETAMINOPHEN\HYDROCODONE BITARTRATE
     Indication: PRODUCT USED FOR UNKNOWN INDICATION

REACTIONS (32)
  - Hypertension [Recovering/Resolving]
  - Antinuclear antibody positive [Recovered/Resolved]
  - Photosensitivity reaction [Unknown]
  - Tremor [Unknown]
  - Paraesthesia [Unknown]
  - Systemic lupus erythematosus [Unknown]
  - Overlap syndrome [Not Recovered/Not Resolved]
  - Gait disturbance [Unknown]
  - Skin exfoliation [Unknown]
  - Cough [Unknown]
  - Pain in extremity [Unknown]
  - Wound infection [Unknown]
  - Impaired healing [Unknown]
  - Hypoaesthesia [Unknown]
  - Diabetic neuropathy [Unknown]
  - Dry lung syndrome [Unknown]
  - Diabetes mellitus [Unknown]
  - Hepatic enzyme increased [Recovered/Resolved]
  - Lung infection [Unknown]
  - Dyspnoea [Not Recovered/Not Resolved]
  - Sjogren^s syndrome [Unknown]
  - Fibromyalgia [Unknown]
  - Osteoporosis [Not Recovered/Not Resolved]
  - Laceration [Unknown]
  - Rheumatoid arthritis [Unknown]
  - Insomnia [Unknown]
  - Burning sensation [Unknown]
  - Atelectasis [Recovered/Resolved]
  - Muscular weakness [Unknown]
  - Antinuclear antibody positive [Not Recovered/Not Resolved]
  - Fatigue [Unknown]
  - Dizziness [Unknown]

NARRATIVE: CASE EVENT DATE: 201706
